FAERS Safety Report 6608769-2 (Version None)
Quarter: 2010Q1

REPORT INFORMATION
  Report Type: 
  Country: None (occurrence: None)
  Receive Date: 20100301
  Receipt Date: 20100219
  Transmission Date: 20100710
  Serious: Yes (Hospitalization, Other)
  Sender: FDA-Public Use
  Company Number: US-AMGEN-QUU394117

PATIENT
  Sex: Male

DRUGS (1)
  1. ENBREL [Suspect]
     Indication: PSORIASIS
     Route: 058
     Dates: start: 20070101

REACTIONS (5)
  - DRUG INEFFECTIVE [None]
  - OPEN FRACTURE [None]
  - PSORIASIS [None]
  - UNEVALUABLE EVENT [None]
  - WOUND INFECTION [None]
